FAERS Safety Report 9100538 (Version 1)
Quarter: 2013Q1

REPORT INFORMATION
  Report Type: Spontaneous
  Country: CA (occurrence: CA)
  Receive Date: 20130214
  Receipt Date: 20130214
  Transmission Date: 20140127
  Serious: Yes (Other)
  Sender: FDA-Public Use
  Company Number: PHHY2013CA014521

PATIENT
  Age: 60 Year
  Sex: Female
  Weight: 43.54 kg

DRUGS (4)
  1. MYFORTIC [Suspect]
     Dosage: 1 DF (TABLET, ENTERIC COATED), DAILY
  2. MYFORTIC [Suspect]
     Dosage: 2 DF, DAILY
  3. PLAQUENIL [Concomitant]
  4. VITAMIN D [Concomitant]

REACTIONS (1)
  - Splenomegaly [Unknown]
